FAERS Safety Report 25352837 (Version 3)
Quarter: 2025Q2

REPORT INFORMATION
  Report Type: Spontaneous
  Country: US (occurrence: US)
  Receive Date: 20250523
  Receipt Date: 20250620
  Transmission Date: 20250717
  Serious: Yes (Other)
  Sender: PFIZER
  Company Number: US-PFIZER INC-202500105877

PATIENT
  Sex: Male

DRUGS (1)
  1. VYNDAMAX [Suspect]
     Active Substance: TAFAMIDIS

REACTIONS (5)
  - Liver function test abnormal [Unknown]
  - Renal disorder [Unknown]
  - Spinal disorder [Unknown]
  - Urine odour abnormal [Unknown]
  - Drug ineffective [Unknown]
